FAERS Safety Report 16991632 (Version 2)
Quarter: 2022Q3

REPORT INFORMATION
  Report Type: Spontaneous
  Country: GR (occurrence: GR)
  Receive Date: 20191104
  Receipt Date: 20220912
  Transmission Date: 20221027
  Serious: No
  Sender: FDA-Public Use
  Company Number: GR-BAXTER-2019BAX022180

PATIENT
  Sex: Female

DRUGS (10)
  1. DOXORUBICIN [Suspect]
     Active Substance: DOXORUBICIN
     Indication: Follicular lymphoma
     Dosage: 8 CYCLES
     Route: 065
     Dates: start: 20041104, end: 20050413
  2. CYCLOPHOSPHAMIDE [Concomitant]
     Active Substance: CYCLOPHOSPHAMIDE
     Indication: Follicular lymphoma
     Dosage: 8 CYCLICAL
     Route: 065
     Dates: start: 20041104, end: 20050413
  3. CYCLOPHOSPHAMIDE [Concomitant]
     Active Substance: CYCLOPHOSPHAMIDE
     Dosage: 2 CYCLICAL
     Route: 065
     Dates: start: 200712, end: 200804
  4. PREDNISOLONE [Concomitant]
     Active Substance: PREDNISOLONE
     Indication: Follicular lymphoma
     Dosage: 8 CYCLICAL
     Route: 065
     Dates: start: 20041104, end: 20050413
  5. PREDNISOLONE [Concomitant]
     Active Substance: PREDNISOLONE
     Dosage: 2 CYCLICAL
     Route: 065
     Dates: start: 200712, end: 200804
  6. RITUXIMAB [Concomitant]
     Active Substance: RITUXIMAB
     Indication: Follicular lymphoma
     Dosage: 8 CYCLICAL
     Route: 065
     Dates: start: 20041104, end: 20050413
  7. RITUXIMAB [Concomitant]
     Active Substance: RITUXIMAB
     Dosage: 2 CYCLICAL
     Route: 065
     Dates: start: 200712, end: 200804
  8. RITUXIMAB [Concomitant]
     Active Substance: RITUXIMAB
     Dosage: UNK
     Route: 065
     Dates: start: 20080401
  9. VINCRISTINE [Concomitant]
     Active Substance: VINCRISTINE
     Indication: Follicular lymphoma
     Dosage: 8 CYLCICAL
     Route: 065
     Dates: start: 20041104, end: 20050413
  10. VINCRISTINE [Concomitant]
     Active Substance: VINCRISTINE
     Dosage: 2 CYCLICAL
     Route: 065
     Dates: start: 200712, end: 200804

REACTIONS (3)
  - Off label use [Unknown]
  - Product use in unapproved indication [Unknown]
  - No adverse event [Unknown]
